FAERS Safety Report 22927109 (Version 2)
Quarter: 2023Q4

REPORT INFORMATION
  Report Type: Report from Study
  Country: US (occurrence: US)
  Receive Date: 20230911
  Receipt Date: 20231201
  Transmission Date: 20240110
  Serious: Yes (Hospitalization)
  Sender: FDA-Public Use
  Company Number: US-ABBVIE-5398920

PATIENT
  Sex: Female

DRUGS (1)
  1. RINVOQ [Suspect]
     Active Substance: UPADACITINIB
     Indication: Rheumatoid arthritis
     Route: 048
     Dates: start: 20230717

REACTIONS (10)
  - Influenza [Unknown]
  - Joint instability [Recovered/Resolved]
  - COVID-19 [Unknown]
  - Immunodeficiency [Unknown]
  - Rheumatoid arthritis [Recovered/Resolved]
  - Stress [Unknown]
  - Mouth ulceration [Unknown]
  - Cyst [Unknown]
  - Musculoskeletal disorder [Unknown]
  - Hypertension [Unknown]

NARRATIVE: CASE EVENT DATE: 20230101
